FAERS Safety Report 7818950-2 (Version None)
Quarter: 2011Q4

REPORT INFORMATION
  Report Type: 
  Country: None (occurrence: None)
  Receive Date: 20111017
  Receipt Date: 20111017
  Transmission Date: 20120403
  Serious: No
  Sender: FDA-Public Use
  Company Number: None

PATIENT
  Sex: Female

DRUGS (1)
  1. DASATIMIB [Suspect]
     Dosage: 100MG DAILY PO
     Route: 048
     Dates: start: 20110301, end: 20111001

REACTIONS (4)
  - CHEST PAIN [None]
  - NASOPHARYNGITIS [None]
  - DYSPNOEA [None]
  - SINUSITIS [None]
